FAERS Safety Report 6998896-2 (Version None)
Quarter: 2010Q3

REPORT INFORMATION
  Report Type: 
  Country: None (occurrence: None)
  Receive Date: 20100920
  Receipt Date: 20100204
  Transmission Date: 20110219
  Serious: No
  Sender: FDA-Public Use
  Company Number: US-ASTRAZENECA-2010SE05161

PATIENT
  Sex: Male
  Weight: 72.6 kg

DRUGS (3)
  1. SEROQUEL [Suspect]
     Indication: BIPOLAR DISORDER
     Route: 048
  2. VALIUM [Concomitant]
     Indication: SINUS OPERATION
  3. HYDROCODONE [Concomitant]
     Indication: SINUS OPERATION

REACTIONS (1)
  - DRUG SCREEN POSITIVE [None]
